FAERS Safety Report 7018494-4 (Version None)
Quarter: 2010Q3

REPORT INFORMATION
  Report Type: 
  Country: None (occurrence: None)
  Receive Date: 20100928
  Receipt Date: 20100921
  Transmission Date: 20110219
  Serious: Yes (Other)
  Sender: FDA-Public Use
  Company Number: GB-CEPHALON-2010004530

PATIENT
  Sex: Male
  Weight: 86 kg

DRUGS (4)
  1. TREANDA [Suspect]
     Route: 042
     Dates: start: 20100622, end: 20100722
  2. RITUXIMAB [Suspect]
     Route: 042
     Dates: start: 20100622, end: 20100723
  3. WARFARIN [Concomitant]
     Dates: start: 20091201
  4. NEUPOGEN [Concomitant]
     Dates: start: 20100727, end: 20100729

REACTIONS (1)
  - IDIOPATHIC THROMBOCYTOPENIC PURPURA [None]
